FAERS Safety Report 9258097 (Version 1)
Quarter: 2013Q1

REPORT INFORMATION
  Report Type: Spontaneous
  Country: US (occurrence: None)
  Receive Date: 20121212
  Receipt Date: 20121212
  Transmission Date: 20140127
  Serious: No
  Sender: FDA-Public Use
  Company Number: 1207USA009282

PATIENT
  Sex: Male

DRUGS (4)
  1. VICTRELIS [Suspect]
     Route: 048
  2. ASCORBIC ACID (ASCORBIC ACID) [Concomitant]
  3. VITAMIN E (VITAMIN E) [Concomitant]
  4. OMEGA-3 MARINE TRIGLYCERIDES [Concomitant]

REACTIONS (1)
  - Hepatitis C RNA increased [None]
